FAERS Safety Report 24968786 (Version 1)
Quarter: 2025Q1

REPORT INFORMATION
  Report Type: Report from Study
  Country: US (occurrence: US)
  Receive Date: 20250214
  Receipt Date: 20250214
  Transmission Date: 20250409
  Serious: No
  Sender: AMNEAL
  Company Number: US-AMNEAL PHARMACEUTICALS-2024-AMRX-02417

PATIENT
  Sex: Male
  Weight: 71.655 kg

DRUGS (8)
  1. CARBIDOPA\LEVODOPA [Suspect]
     Active Substance: CARBIDOPA\LEVODOPA
     Indication: Parkinson^s disease
     Dosage: 61.25/245 MG, 1 CAPSULES, TID
     Route: 048
     Dates: start: 20230530
  2. CARBIDOPA\LEVODOPA [Suspect]
     Active Substance: CARBIDOPA\LEVODOPA
     Dosage: 61.25/245 MG, 1 CAPSULES, TID
     Route: 048
     Dates: start: 20240402
  3. AZILECT [Concomitant]
     Active Substance: RASAGILINE MESYLATE
     Indication: Product used for unknown indication
     Route: 048
     Dates: start: 20221130
  4. AZILECT [Concomitant]
     Active Substance: RASAGILINE MESYLATE
     Route: 048
     Dates: start: 20230918
  5. MELATONIN [Concomitant]
     Active Substance: MELATONIN
     Indication: Product used for unknown indication
     Route: 048
  6. NEURONTIN [Concomitant]
     Active Substance: GABAPENTIN
     Indication: Product used for unknown indication
     Dosage: 300 MILLIGRAM, QD
     Route: 048
     Dates: start: 20240402
  7. ADVIL [Concomitant]
     Active Substance: IBUPROFEN
     Indication: Pain
     Route: 065
  8. ACETAMINOPHEN [Concomitant]
     Active Substance: ACETAMINOPHEN
     Indication: Pain
     Route: 065

REACTIONS (9)
  - Restless legs syndrome [Unknown]
  - Gait disturbance [Unknown]
  - Fatigue [Unknown]
  - Sleep disorder [Unknown]
  - Mood altered [Unknown]
  - Amnesia [Unknown]
  - Deafness [Unknown]
  - Sensory loss [Unknown]
  - Radiculopathy [Unknown]
